FAERS Safety Report 23208685 (Version 3)
Quarter: 2024Q4

REPORT INFORMATION
  Report Type: Report from Study
  Country: RU (occurrence: RU)
  Receive Date: 20231121
  Receipt Date: 20241227
  Transmission Date: 20250115
  Serious: Yes (Hospitalization, Other)
  Sender: TAKEDA
  Company Number: RU-TAKEDA-2023TUS112153

PATIENT
  Age: 32 Year
  Sex: Male
  Weight: 50 kg

DRUGS (2)
  1. AGALSIDASE ALFA [Suspect]
     Active Substance: AGALSIDASE ALFA
     Indication: Fabry^s disease
     Dosage: 3 DOSAGE FORM
  2. AGALSIDASE ALFA [Suspect]
     Active Substance: AGALSIDASE ALFA
     Dosage: UNK, Q2WEEKS

REACTIONS (7)
  - Alcohol use [Unknown]
  - Loss of consciousness [Not Recovered/Not Resolved]
  - Localised infection [Unknown]
  - Seizure [Unknown]
  - Furuncle [Unknown]
  - Blood pressure decreased [Unknown]
  - Osteomyelitis [Unknown]

NARRATIVE: CASE EVENT DATE: 20231112
